FAERS Safety Report 26107620 (Version 1)
Quarter: 2025Q4

REPORT INFORMATION
  Report Type: Spontaneous
  Country: CN (occurrence: CN)
  Receive Date: 20251201
  Receipt Date: 20251201
  Transmission Date: 20260117
  Serious: Yes (Hospitalization, Other)
  Sender: BAYER HEALTHCARE PHARMACEUTICALS INC.
  Company Number: CN-BAYER-2025A156144

PATIENT
  Age: 88 Year
  Sex: Male

DRUGS (1)
  1. GLUCOBAY [Suspect]
     Active Substance: ACARBOSE
     Indication: Diabetes mellitus
     Dosage: 50 MG, TID
     Route: 048
     Dates: start: 20251027, end: 20251102

REACTIONS (10)
  - Diarrhoea [Recovered/Resolved]
  - Haematochezia [None]
  - Abdominal pain [Recovering/Resolving]
  - Headache [None]
  - Cardiac disorder [None]
  - Tachypnoea [Recovering/Resolving]
  - Hypophagia [None]
  - Intestinal dilatation [None]
  - Flatulence [None]
  - White blood cells stool positive [None]

NARRATIVE: CASE EVENT DATE: 20251001
